FAERS Safety Report 9663672 (Version 4)
Quarter: 2014Q1

REPORT INFORMATION
  Report Type: Report from Study
  Country: CL (occurrence: CL)
  Receive Date: 20131101
  Receipt Date: 20140109
  Transmission Date: 20141002
  Serious: Yes (Other)
  Sender: FDA-Public Use
  Company Number: PHHY2013CL123137

PATIENT
  Age: 68 Year
  Sex: Female

DRUGS (2)
  1. EXFORGE [Suspect]
     Indication: HYPERTENSION
     Dosage: 320/5 MG, ONCE A DAY
     Route: 048
     Dates: start: 2007
  2. GLAFORNIL [Concomitant]
     Indication: DIABETES MELLITUS
     Dosage: 750 MG, UNK
     Route: 048

REACTIONS (8)
  - Fall [Unknown]
  - Upper limb fracture [Unknown]
  - Femur fracture [Recovering/Resolving]
  - Glaucoma [Unknown]
  - Intraocular pressure increased [Unknown]
  - Retinal tear [Recovered/Resolved]
  - Ligament sprain [Unknown]
  - Muscle rigidity [Recovering/Resolving]
